FAERS Safety Report 25202166 (Version 8)
Quarter: 2025Q4

REPORT INFORMATION
  Report Type: Report from Study
  Country: IN (occurrence: IN)
  Receive Date: 20250416
  Receipt Date: 20251231
  Transmission Date: 20260117
  Serious: Yes (Other)
  Sender: NOVARTIS
  Company Number: IN-002147023-NVSC2024IN147430

PATIENT
  Age: 64 Year
  Sex: Female
  Weight: 56.4 kg

DRUGS (10)
  1. RIBOCICLIB [Suspect]
     Active Substance: RIBOCICLIB
     Indication: Breast cancer
     Dosage: 400 MG, QD
     Route: 048
     Dates: start: 20230508
  2. RIBOCICLIB [Suspect]
     Active Substance: RIBOCICLIB
     Indication: Hormone receptor positive HER2 negative breast cancer
     Dosage: 200MG,ONE DAY ALTERNATING WITH 400 MG NEXT DAY, ONCE DAILY X 3 WEEKS F/B 1 WEEK GAP
     Route: 048
  3. RIBOCICLIB [Suspect]
     Active Substance: RIBOCICLIB
     Indication: Breast cancer metastatic
     Dosage: 400 MG
     Route: 048
     Dates: start: 20240410
  4. RIBOCICLIB [Suspect]
     Active Substance: RIBOCICLIB
     Dosage: 200 MG
     Route: 048
  5. RIBOCICLIB [Suspect]
     Active Substance: RIBOCICLIB
     Dosage: 400 MG
     Route: 048
  6. RIBOCICLIB [Suspect]
     Active Substance: RIBOCICLIB
     Dosage: 200 MG ONE DAY ALTERNATING WITH 400 MG NEXT DAY ONCE DAILY
     Route: 048
  7. FULVESTRANT [Concomitant]
     Active Substance: FULVESTRANT
     Indication: Product used for unknown indication
     Dosage: UNK
     Route: 065
  8. FULVESTRANT [Concomitant]
     Active Substance: FULVESTRANT
     Dosage: UNK, SECOND DOSE
     Route: 065
     Dates: start: 20230524
  9. FULVESTRANT [Concomitant]
     Active Substance: FULVESTRANT
     Dosage: UNK, THIRD DOSE
     Route: 065
     Dates: start: 20230607
  10. FULVESTRANT [Concomitant]
     Active Substance: FULVESTRANT
     Dosage: 2 MG, QD (INJECTION)
     Route: 065
     Dates: start: 20250901

REACTIONS (46)
  - Breast cancer metastatic [Unknown]
  - Malignant neoplasm progression [Unknown]
  - Cerebral atrophy [Unknown]
  - Fatigue [Recovered/Resolved]
  - Fatigue [Unknown]
  - Asthenia [Recovered/Resolved]
  - Pain [Recovered/Resolved]
  - Dengue fever [Unknown]
  - Depression [Unknown]
  - Injection site induration [Unknown]
  - Asthenia [Unknown]
  - Pain [Unknown]
  - Neutrophil count abnormal [Unknown]
  - Blood thyroid stimulating hormone abnormal [Unknown]
  - Blood pressure abnormal [Unknown]
  - Vertigo [Unknown]
  - Lymphadenopathy mediastinal [Unknown]
  - White matter lesion [Unknown]
  - Eastern Cooperative Oncology Group performance status abnormal [Unknown]
  - Off label use [Unknown]
  - Blood calcium abnormal [Unknown]
  - Blood creatinine abnormal [Unknown]
  - Blood bilirubin abnormal [Unknown]
  - Bilirubin conjugated abnormal [Unknown]
  - Aspartate aminotransferase abnormal [Unknown]
  - Alanine aminotransferase abnormal [Unknown]
  - Blood alkaline phosphatase abnormal [Unknown]
  - Protein total abnormal [Unknown]
  - Gamma-glutamyltransferase abnormal [Unknown]
  - Blood albumin abnormal [Unknown]
  - Globulin abnormal [Unknown]
  - Albumin globulin ratio abnormal [Unknown]
  - White blood cell disorder [Unknown]
  - Haemoglobin abnormal [Unknown]
  - Platelet count abnormal [Unknown]
  - Mean platelet volume abnormal [Unknown]
  - Lymphocyte percentage abnormal [Unknown]
  - Lymphocyte count abnormal [Unknown]
  - Monocyte percentage abnormal [Unknown]
  - Eosinophil percentage abnormal [Unknown]
  - Red blood cell count abnormal [Unknown]
  - Haematocrit abnormal [Unknown]
  - Mean cell volume abnormal [Unknown]
  - Mean cell haemoglobin concentration abnormal [Unknown]
  - Red cell distribution width abnormal [Unknown]
  - Laboratory test abnormal [Unknown]

NARRATIVE: CASE EVENT DATE: 20230524
